FAERS Safety Report 9664524 (Version 1)
Quarter: 2013Q4

REPORT INFORMATION
  Report Type: Report from Study
  Country: BR (occurrence: BR)
  Receive Date: 20131101
  Receipt Date: 20131101
  Transmission Date: 20140711
  Serious: Yes (Other)
  Sender: FDA-Public Use
  Company Number: PHHY2013BR123925

PATIENT
  Age: 51 Year
  Sex: Female
  Weight: 82 kg

DRUGS (2)
  1. DIOVAN [Suspect]
     Indication: HYPERTENSION
     Dosage: 1 DF (320MG), DAILY
     Route: 048
  2. PURAN T4 [Concomitant]
     Indication: HYPOTHYROIDISM
     Dosage: 125 MG, DAILY
     Route: 048

REACTIONS (2)
  - Renal cancer [Not Recovered/Not Resolved]
  - Metastases to liver [Not Recovered/Not Resolved]
